FAERS Safety Report 7585421-0 (Version None)
Quarter: 2011Q3

REPORT INFORMATION
  Report Type: 
  Country: None (occurrence: None)
  Receive Date: 20110701
  Receipt Date: 20110429
  Transmission Date: 20111222
  Serious: Yes (Hospitalization, Other)
  Sender: FDA-Public Use
  Company Number: US-BAYER-201028523NA

PATIENT
  Age: 17 Year
  Sex: Female
  Weight: 49.887 kg

DRUGS (4)
  1. YAZ [Suspect]
     Indication: ACNE
     Dosage: UNK UNK, UNK
     Route: 048
     Dates: start: 20080201, end: 20080301
  2. COLACE SODIUM [Concomitant]
     Dosage: 100 MG, UNK
     Dates: start: 20080616, end: 20080616
  3. PHENERGAN HCL [Concomitant]
     Dosage: 25 MG, UNK
     Dates: start: 20080616, end: 20080616
  4. PERCOCET [Concomitant]
     Dosage: UNK
     Dates: start: 20080616, end: 20080616

REACTIONS (4)
  - CHOLELITHIASIS [None]
  - ABDOMINAL PAIN UPPER [None]
  - ABDOMINAL PAIN [None]
  - CHOLECYSTITIS CHRONIC [None]
